FAERS Safety Report 4879742-X (Version None)
Quarter: 2006Q1

REPORT INFORMATION
  Report Type: 
  Country: None (occurrence: None)
  Receive Date: 20060113
  Receipt Date: 20051110
  Transmission Date: 20060701
  Serious: Yes (Disabling)
  Sender: FDA-Public Use
  Company Number: US-GLAXOSMITHKLINE-A0581821A

PATIENT
  Age: 38 Year
  Sex: Female
  Weight: 95.9 kg

DRUGS (5)
  1. LAMICTAL [Suspect]
     Indication: BIPOLAR DISORDER
     Dosage: 400MG PER DAY
     Route: 048
     Dates: start: 20041001, end: 20050801
  2. DEPAKOTE [Suspect]
     Indication: DRUG USE FOR UNKNOWN INDICATION
     Dosage: 2000MG UNKNOWN
  3. SEROQUEL [Concomitant]
     Dosage: 600MG AT NIGHT
  4. WELLBUTRIN XL [Concomitant]
     Dosage: 150MG IN THE MORNING
  5. INDERAL LA [Concomitant]
     Dosage: 120MG PER DAY

REACTIONS (6)
  - CONFUSIONAL STATE [None]
  - DRUG TOXICITY [None]
  - LETHARGY [None]
  - MEMORY IMPAIRMENT [None]
  - SEDATION [None]
  - TANGENTIALITY [None]
